FAERS Safety Report 23472923 (Version 3)
Quarter: 2025Q1

REPORT INFORMATION
  Report Type: Spontaneous
  Country: US (occurrence: US)
  Receive Date: 20240203
  Receipt Date: 20250326
  Transmission Date: 20250409
  Serious: Yes (Other)
  Sender: RISING PHARMACEUTICALS
  Company Number: US-RISINGPHARMA-US-2024RISSPO00026

PATIENT
  Age: 37 Year
  Sex: Female

DRUGS (12)
  1. VERAPAMIL HYDROCHLORIDE [Suspect]
     Active Substance: VERAPAMIL HYDROCHLORIDE
     Indication: Insulinoma
     Route: 065
  2. PREDNISOLONE [Suspect]
     Active Substance: PREDNISOLONE
     Indication: Insulinoma
     Route: 065
  3. PREDNISOLONE [Suspect]
     Active Substance: PREDNISOLONE
     Route: 065
  4. PREDNISOLONE [Suspect]
     Active Substance: PREDNISOLONE
     Route: 065
  5. PREDNISOLONE [Suspect]
     Active Substance: PREDNISOLONE
     Dosage: ON HER REQUEST DOSE DECREASED
     Route: 065
  6. PREDNISOLONE [Suspect]
     Active Substance: PREDNISOLONE
     Dosage: DOSE DECREASED
     Route: 065
  7. OCTREOTIDE [Suspect]
     Active Substance: OCTREOTIDE
     Indication: Insulinoma
     Dosage: 50 MICROGRAM
     Route: 058
  8. DIAZOXIDE [Suspect]
     Active Substance: DIAZOXIDE
     Indication: Insulinoma
     Route: 065
  9. DIAZOXIDE [Suspect]
     Active Substance: DIAZOXIDE
     Route: 065
  10. DIAZOXIDE [Suspect]
     Active Substance: DIAZOXIDE
     Route: 065
  11. DIAZOXIDE [Suspect]
     Active Substance: DIAZOXIDE
     Route: 065
  12. HYDROCHLOROTHIAZIDE [Concomitant]
     Active Substance: HYDROCHLOROTHIAZIDE
     Indication: Product used for unknown indication
     Route: 065

REACTIONS (4)
  - Drug ineffective [Unknown]
  - Off label use [Unknown]
  - Intentional product misuse [Unknown]
  - No adverse event [Unknown]
